FAERS Safety Report 5075994-4 (Version None)
Quarter: 2006Q3

REPORT INFORMATION
  Report Type: 
  Country: None (occurrence: None)
  Receive Date: 20060809
  Receipt Date: 20060731
  Transmission Date: 20061208
  Serious: Yes (Death, Hospitalization)
  Sender: FDA-Public Use
  Company Number: JP-GILEAD-2006-0009944

PATIENT
  Sex: Male

DRUGS (5)
  1. VIREAD [Suspect]
     Indication: HIV INFECTION
     Route: 048
     Dates: start: 20050704, end: 20050719
  2. EPIVIR [Suspect]
     Indication: HIV INFECTION
     Route: 048
     Dates: start: 19990719, end: 20050719
  3. PEGASYS [Concomitant]
     Indication: HEPATITIS C
     Route: 058
     Dates: start: 20050701, end: 20050715
  4. RECOMBINATE [Concomitant]
     Dates: start: 20050401, end: 20050728
  5. NOVOSEVEN [Concomitant]
     Dates: start: 20050703, end: 20050804

REACTIONS (3)
  - DISEASE PROGRESSION [None]
  - HEPATIC NEOPLASM MALIGNANT [None]
  - JAUNDICE [None]
